FAERS Safety Report 16895227 (Version 1)
Quarter: 2019Q4

REPORT INFORMATION
  Report Type: Spontaneous
  Country: US (occurrence: US)
  Receive Date: 20191008
  Receipt Date: 20191008
  Transmission Date: 20200122
  Serious: No
  Sender: FDA-Public Use
  Company Number: US-INDIVIOR US-INDV-114227-2018

PATIENT

DRUGS (3)
  1. BUPRENORPHINE. [Suspect]
     Active Substance: BUPRENORPHINE
     Indication: PRODUCT USED FOR UNKNOWN INDICATION
     Dosage: 6MG, UNK
     Route: 065
  2. BUPRENORPHINE. [Suspect]
     Active Substance: BUPRENORPHINE
     Dosage: 24MG, DAILY
     Route: 065
  3. SUBLOCADE [Suspect]
     Active Substance: BUPRENORPHINE
     Indication: PRODUCT USED FOR UNKNOWN INDICATION
     Dosage: 300 MG, QMO
     Route: 065
     Dates: start: 201808

REACTIONS (12)
  - Confusional state [Unknown]
  - Muscle tightness [Unknown]
  - Headache [Unknown]
  - Dyspnoea [Recovered/Resolved]
  - Agitation [Unknown]
  - Asthenia [Unknown]
  - Tinnitus [Unknown]
  - Muscular weakness [Unknown]
  - Euphoric mood [Unknown]
  - Dizziness [Unknown]
  - Bradyphrenia [Unknown]
  - Somnolence [Unknown]
